FAERS Safety Report 5053403-9 (Version None)
Quarter: 2006Q3

REPORT INFORMATION
  Report Type: 
  Country: None (occurrence: None)
  Receive Date: 20060712
  Receipt Date: 20060628
  Transmission Date: 20061208
  Serious: No
  Sender: FDA-Public Use
  Company Number: 2006069018

PATIENT
  Age: 35 Year
  Sex: Female

DRUGS (2)
  1. DEPO-PROVERA [Suspect]
     Indication: UTERINE LEIOMYOMA
     Dosage: 150 MG (150 MG, FIRST INJECTION/ TRIMESTRAL)
     Route: 030
     Dates: start: 20060422, end: 20060422
  2. ATENOLOL [Concomitant]

REACTIONS (8)
  - ATROPHIC VULVOVAGINITIS [None]
  - DYSPAREUNIA [None]
  - ERYTHEMA [None]
  - FEELING HOT [None]
  - LABORATORY TEST INTERFERENCE [None]
  - TACHYCARDIA [None]
  - VAGINAL PAIN [None]
  - VULVOVAGINAL DRYNESS [None]
